FAERS Safety Report 11286547 (Version 1)
Quarter: 2015Q3

REPORT INFORMATION
  Report Type: Spontaneous
  Country: US (occurrence: US)
  Receive Date: 20150721
  Receipt Date: 20150721
  Transmission Date: 20151125
  Serious: No
  Sender: FDA-Public Use
  Company Number: US-UNITED THERAPEUTICS-UNT-2015-000495

PATIENT
  Age: 42 Year
  Sex: Female
  Weight: 87.75 kg

DRUGS (3)
  1. TYVASO [Suspect]
     Active Substance: TREPROSTINIL
     Indication: PULMONARY ARTERIAL HYPERTENSION
     Dosage: 18-72 MICROGRAMS, QID
     Dates: start: 20150109, end: 20150117
  2. SILDENAFIL. [Concomitant]
     Active Substance: SILDENAFIL
     Indication: PRODUCT USED FOR UNKNOWN INDICATION
  3. LETAIRIS [Concomitant]
     Active Substance: AMBRISENTAN
     Indication: PRODUCT USED FOR UNKNOWN INDICATION

REACTIONS (13)
  - Therapy cessation [Unknown]
  - Headache [Unknown]
  - Oropharyngeal pain [Unknown]
  - Dyspnoea [Unknown]
  - Musculoskeletal pain [Unknown]
  - Nausea [Unknown]
  - Diarrhoea [Unknown]
  - Malaise [Recovering/Resolving]
  - Influenza [Unknown]
  - Fatigue [Unknown]
  - Ear pain [Unknown]
  - Asthenia [Unknown]
  - Cough [Unknown]

NARRATIVE: CASE EVENT DATE: 201501
